FAERS Safety Report 8344779-5 (Version None)
Quarter: 2012Q1

REPORT INFORMATION
  Report Type: 
  Country: None (occurrence: None)
  Receive Date: 20120315
  Receipt Date: 20110519
  Transmission Date: 20120608
  Serious: No
  Sender: FDA-Public Use
  Company Number: PHHY2011US40253

PATIENT
  Age: 30 Year
  Sex: Female

DRUGS (3)
  1. GILENYA [Suspect]
     Indication: MULTIPLE SCLEROSIS
     Dosage: 0.5 MG, DAILY, ORAL
     Route: 048
     Dates: start: 20110331, end: 20110403
  2. ZANTAC [Concomitant]
  3. DETROL [Concomitant]

REACTIONS (2)
  - GAIT DISTURBANCE [None]
  - CHEST DISCOMFORT [None]
